FAERS Safety Report 25850599 (Version 1)
Quarter: 2025Q3

REPORT INFORMATION
  Report Type: Report from Study
  Country: GB (occurrence: GB)
  Receive Date: 20250926
  Receipt Date: 20250926
  Transmission Date: 20251020
  Serious: Yes (Disabling, Other)
  Sender: TAKEDA
  Company Number: GB-TAKEDA-2022TUS000045

PATIENT
  Sex: Female

DRUGS (4)
  1. VEDOLIZUMAB [Suspect]
     Active Substance: VEDOLIZUMAB
     Indication: Crohn^s disease
     Dosage: 108 MILLIGRAM, Q2WEEKS
  2. VEDOLIZUMAB [Suspect]
     Active Substance: VEDOLIZUMAB
  3. VEDOLIZUMAB [Suspect]
     Active Substance: VEDOLIZUMAB
  4. VEDOLIZUMAB [Suspect]
     Active Substance: VEDOLIZUMAB

REACTIONS (9)
  - Disability [Not Recovered/Not Resolved]
  - Injection site inflammation [Unknown]
  - Product residue present [Unknown]
  - Injection site warmth [Unknown]
  - Arthritis [Unknown]
  - Multiple allergies [Unknown]
  - Injection site erythema [Unknown]
  - Injection site pruritus [Unknown]
  - Arthralgia [Unknown]
